FAERS Safety Report 10575930 (Version 1)
Quarter: 2014Q4

REPORT INFORMATION
  Report Type: Spontaneous
  Country: US (occurrence: None)
  Receive Date: 20141110
  Receipt Date: 20141110
  Transmission Date: 20150529
  Serious: Yes (Other)
  Sender: FDA-Public Use
  Company Number: None

PATIENT
  Age: 21 Year
  Sex: Female
  Weight: 97.98 kg

DRUGS (1)
  1. LUPRON DEPOT [Suspect]
     Active Substance: LEUPROLIDE ACETATE
     Indication: ENDOMETRIOSIS
     Dosage: 11.25MG, EVERY 3 MONTHS, INTRAMUSCULAR
     Route: 030
     Dates: start: 20140721, end: 20141021

REACTIONS (4)
  - Visual impairment [None]
  - Benign intracranial hypertension [None]
  - Blood creatinine increased [None]
  - Visual field defect [None]

NARRATIVE: CASE EVENT DATE: 20140917
